FAERS Safety Report 24545447 (Version 1)
Quarter: 2024Q4

REPORT INFORMATION
  Report Type: Spontaneous
  Country: DE (occurrence: DE)
  Receive Date: 20241024
  Receipt Date: 20241024
  Transmission Date: 20250115
  Serious: Yes (Other)
  Sender: SANDOZ
  Company Number: DE-BESINS-2024-04804

PATIENT
  Age: 56 Year
  Sex: Female
  Weight: 56 kg

DRUGS (3)
  1. ESTRADIOL [Suspect]
     Active Substance: ESTRADIOL
     Indication: Product used for unknown indication
     Dosage: 1 DOSE, APPLIED TO THE SKIN
     Route: 065
  2. ESTRADIOL [Suspect]
     Active Substance: ESTRADIOL
     Dosage: REDUCE THE ESTRADIOL DOSE TO TWICE A WEEK
     Route: 065
     Dates: start: 2024, end: 2024
  3. PROGESTERONE [Suspect]
     Active Substance: PROGESTERONE
     Indication: Product used for unknown indication
     Dosage: 100 MG IN THE EVENING
     Route: 065

REACTIONS (5)
  - Postmenopausal haemorrhage [Unknown]
  - Breast swelling [Not Recovered/Not Resolved]
  - Breast pain [Unknown]
  - Underdose [Unknown]
  - Product prescribing error [Unknown]

NARRATIVE: CASE EVENT DATE: 20240101
